FAERS Safety Report 4504395-X (Version None)
Quarter: 2004Q4

REPORT INFORMATION
  Report Type: 
  Country: None (occurrence: None)
  Receive Date: 20041118
  Receipt Date: 20041108
  Transmission Date: 20050328
  Serious: Yes (Other)
  Sender: FDA-Public Use
  Company Number: JP-ROCHE-385604

PATIENT
  Age: 14 Year
  Sex: Female

DRUGS (5)
  1. PERDIPINE [Suspect]
     Indication: PROPHYLAXIS
     Route: 065
     Dates: start: 20040415, end: 20040501
  2. PERDIPINE [Suspect]
     Dosage: LOWERED DOSAGE.
     Route: 065
     Dates: start: 20040501
  3. SEVOFLURANE [Concomitant]
     Dosage: DRUG NAME: AOS (AIR, SEVOFLURANE, OXYGEN)
     Dates: start: 20040430, end: 20040430
  4. PROPOFOL [Concomitant]
     Dates: start: 20040430, end: 20040430
  5. VECURONIUM [Concomitant]
     Dates: start: 20040430, end: 20040430

REACTIONS (6)
  - HYPERKALAEMIA [None]
  - HYPERTHERMIA MALIGNANT [None]
  - HYPOTENSION [None]
  - MYOGLOBINURIA [None]
  - TACHYCARDIA [None]
  - VENTRICULAR EXTRASYSTOLES [None]
